FAERS Safety Report 8272286-7 (Version None)
Quarter: 2012Q2

REPORT INFORMATION
  Report Type: 
  Country: None (occurrence: None)
  Receive Date: 20120410
  Receipt Date: 20120330
  Transmission Date: 20120825
  Serious: Yes (Other)
  Sender: FDA-Public Use
  Company Number: US-BAYER-2012-025568

PATIENT
  Age: 65 Year
  Sex: Female
  Weight: 111.13 kg

DRUGS (4)
  1. ATENOLOL [Concomitant]
     Route: 048
  2. XARELTO [Suspect]
     Indication: ATRIAL FIBRILLATION
     Dosage: 20 MG, QD
     Route: 048
     Dates: start: 20120208, end: 20120227
  3. ASPIRIN [Suspect]
     Indication: ILL-DEFINED DISORDER
     Dates: end: 20120224
  4. COUMADIN [Concomitant]
     Indication: ATRIAL FIBRILLATION
     Dates: end: 20120208

REACTIONS (1)
  - URINARY BLADDER HAEMORRHAGE [None]
